FAERS Safety Report 7142139-6 (Version None)
Quarter: 2010Q4

REPORT INFORMATION
  Report Type: 
  Country: None (occurrence: None)
  Receive Date: 20101203
  Receipt Date: 20101203
  Transmission Date: 20110411
  Serious: No
  Sender: FDA-Public Use
  Company Number: None

PATIENT
  Sex: Male
  Weight: 108.8633 kg

DRUGS (1)
  1. ZICAM NASAL GEL NONE MENTIONED ZICAM LLC [Suspect]
     Indication: NASOPHARYNGITIS
     Dates: start: 20080301, end: 20100314

REACTIONS (1)
  - ANOSMIA [None]
